FAERS Safety Report 7001212-3 (Version None)
Quarter: 2010Q3

REPORT INFORMATION
  Report Type: 
  Country: None (occurrence: None)
  Receive Date: 20100920
  Receipt Date: 20070817
  Transmission Date: 20110219
  Serious: Yes (Other)
  Sender: FDA-Public Use
  Company Number: US-ASTRAZENECA-2006UW25933

PATIENT
  Age: 13257 Day
  Sex: Female
  Weight: 74.7 kg

DRUGS (27)
  1. SEROQUEL [Suspect]
     Indication: BIPOLAR DISORDER
     Dosage: STRENGTH: 25-100 MG, DOSE: 100 MG SIX TIMES A DAY
     Route: 048
     Dates: start: 20030508
  2. SEROQUEL [Suspect]
     Indication: DEPRESSION
     Dosage: STRENGTH: 25-100 MG, DOSE: 100 MG SIX TIMES A DAY
     Route: 048
     Dates: start: 20030508
  3. SEROQUEL [Suspect]
     Route: 048
  4. SEROQUEL [Suspect]
     Route: 048
  5. CLOZARIL [Concomitant]
  6. ALPRAZOLAM [Concomitant]
     Dates: start: 20030508
  7. TEMAZEPAM [Concomitant]
     Dates: start: 20030508
  8. ZOLOFT [Concomitant]
     Dates: start: 20030508
  9. OMEPRAZOLE [Concomitant]
     Dates: start: 20030516
  10. LEVAQUIN [Concomitant]
     Dates: start: 20030516
  11. ACETAMINOPHEN AND HYDROCODONE BITARTRATE [Concomitant]
     Dosage: STRENGTH: 5 MG/500 MG
     Dates: start: 20030516
  12. PREMARIN [Concomitant]
     Route: 048
     Dates: start: 20040130
  13. TRILEPTAL [Concomitant]
     Dosage: 600-900 MG DAILY
     Route: 048
     Dates: start: 20040317
  14. BELLADONNA [Concomitant]
     Route: 048
     Dates: start: 20040317
  15. KLONOPIN [Concomitant]
     Dates: start: 20040317
  16. WELLBUTRIN [Concomitant]
     Route: 048
     Dates: start: 20040317
  17. ANDROGEL [Concomitant]
     Dates: start: 20040908
  18. FLORINEF [Concomitant]
     Dates: start: 20041203
  19. PROAMATINE [Concomitant]
     Dates: start: 20041203
  20. LEXAPRO [Concomitant]
     Dates: start: 20060228
  21. PHENTERMINE [Concomitant]
     Dates: start: 20040317
  22. VALTREX [Concomitant]
     Dates: start: 20070814
  23. LEVOXYL [Concomitant]
     Dates: start: 20070814
  24. LUNESTA [Concomitant]
     Dates: start: 20070814
  25. NEXIUM [Concomitant]
     Dates: start: 20070814
  26. COMBIVENT [Concomitant]
     Dates: start: 20070814
  27. ALBUTEROL [Concomitant]
     Dates: start: 20070814

REACTIONS (6)
  - BLOOD GLUCOSE DECREASED [None]
  - DIABETES MELLITUS [None]
  - DIABETIC KETOACIDOSIS [None]
  - GESTATIONAL DIABETES [None]
  - HYPOGLYCAEMIA [None]
  - KETOACIDOSIS [None]
